FAERS Safety Report 25487991 (Version 1)
Quarter: 2025Q2

REPORT INFORMATION
  Report Type: Spontaneous
  Country: DE (occurrence: DE)
  Receive Date: 20250627
  Receipt Date: 20250627
  Transmission Date: 20250716
  Serious: Yes (Other)
  Sender: SUNOVION
  Company Number: DE-RICHTER-2025-GR-007075

PATIENT

DRUGS (1)
  1. ESTRADIOL\NORETHINDRONE ACETATE\RELUGOLIX [Suspect]
     Active Substance: ESTRADIOL\NORETHINDRONE ACETATE\RELUGOLIX
     Indication: Product used for unknown indication
     Route: 048

REACTIONS (1)
  - Migraine with aura [Recovered/Resolved]
